FAERS Safety Report 7355349-X (Version None)
Quarter: 2011Q1

REPORT INFORMATION
  Report Type: 
  Country: None (occurrence: None)
  Receive Date: 20110316
  Receipt Date: 20110309
  Transmission Date: 20110831
  Serious: Yes (Hospitalization)
  Sender: FDA-Public Use
  Company Number: NL-MEDIMMUNE-MEDI-0012824

PATIENT
  Sex: Female
  Weight: 3.3 kg

DRUGS (2)
  1. SYNAGIS [Suspect]
     Route: 030
     Dates: start: 20110307, end: 20110307
  2. SYNAGIS [Suspect]
     Route: 030
     Dates: start: 20110208, end: 20110208

REACTIONS (5)
  - CYANOSIS [None]
  - FLUID INTAKE REDUCED [None]
  - PYREXIA [None]
  - NASOPHARYNGITIS [None]
  - DIARRHOEA [None]
